FAERS Safety Report 8399716 (Version 2)
Quarter: 2013Q1

REPORT INFORMATION
  Report Type: Spontaneous
  Country: US (occurrence: US)
  Receive Date: 20120210
  Receipt Date: 20130208
  Transmission Date: 20140127
  Serious: Yes (Other)
  Sender: FDA-Public Use
  Company Number: US-GLAXOSMITHKLINE-A0937187A

PATIENT
  Age: 33 Year
  Sex: Female

DRUGS (1)
  1. PAROXETINE [Suspect]
     Indication: PANIC DISORDER
     Dosage: 20MG PER DAY
     Route: 065
     Dates: start: 200804

REACTIONS (3)
  - Premature baby [Unknown]
  - Live birth [Unknown]
  - Exposure during pregnancy [Unknown]
